FAERS Safety Report 9648211 (Version 3)
Quarter: 2013Q4

REPORT INFORMATION
  Report Type: Spontaneous
  Country: FR (occurrence: FR)
  Receive Date: 20131028
  Receipt Date: 20131121
  Transmission Date: 20140711
  Serious: Yes (Hospitalization)
  Sender: FDA-Public Use
  Company Number: PHHY2013FR119991

PATIENT
  Age: 92 Year
  Sex: Female

DRUGS (25)
  1. VOLTARENE [Suspect]
     Dosage: UNK UKN, UNK
     Route: 061
     Dates: end: 20130728
  2. VOLTARENE [Suspect]
     Dosage: UNK UKN, UNK
     Route: 061
     Dates: start: 20130825, end: 20130831
  3. FLAGYL [Suspect]
     Indication: LUNG DISORDER
     Dosage: UNK UKN, UNK
     Route: 048
     Dates: start: 20130728, end: 20130820
  4. ZOPHREN [Suspect]
     Indication: VOMITING
     Dosage: UNK UKN, UNK
     Route: 048
     Dates: start: 20130728, end: 20130820
  5. ACUPAN [Suspect]
     Indication: ABDOMINAL PAIN
     Dosage: UNK UKN, UNK
     Route: 048
     Dates: start: 20130728, end: 20130820
  6. DROLEPTAN [Suspect]
     Dosage: UNK UKN, UNK
     Route: 048
     Dates: start: 20130728, end: 20130820
  7. ROCEPHINE [Suspect]
     Indication: INFECTION
     Dosage: UNK UKN, UNK
     Route: 042
     Dates: start: 20130728, end: 20130820
  8. ALLOPURINOL [Concomitant]
     Dosage: 0.5 DF, QD
     Route: 048
     Dates: end: 20130728
  9. INEXIUM//ESOMEPRAZOLE MAGNESIUM [Concomitant]
     Dosage: 20 MG, QD
     Route: 048
     Dates: start: 20130728, end: 20130831
  10. EUPANTOL [Concomitant]
     Dosage: 20 MG, QD
     Route: 048
     Dates: start: 20130831
  11. EUPRESSYL [Concomitant]
     Dosage: 30 MG, TID
     Route: 048
     Dates: start: 20130728
  12. TARDYFERON [Concomitant]
     Dosage: 80 MG, BID
     Route: 048
     Dates: start: 20130728, end: 20130831
  13. FUMAFER [Concomitant]
     Dosage: 1 DF, TID
     Dates: start: 20130831
  14. SPECIAFOLDINE [Concomitant]
     Dosage: 5 MG, QD
     Dates: start: 20130825
  15. CALCIPARINE [Concomitant]
     Dosage: 0.2 ML, BID
     Route: 058
     Dates: start: 20130728
  16. PARACETAMOL [Concomitant]
     Dosage: UNK UKN, PRN (UNTIL 1G TID)
     Route: 048
     Dates: start: 20130728
  17. TENORMINE [Concomitant]
     Dosage: UNK UKN, UNK
  18. KARDEGIC [Concomitant]
     Dosage: 75 MG, QD
  19. COZAAR [Concomitant]
     Dosage: 25 MG, QD
  20. IKOREL [Concomitant]
     Dosage: 10 MG, BID
  21. CORDARONE [Concomitant]
     Dosage: 100 MG, BID
  22. LASILIX [Concomitant]
     Dosage: 60 MG, QD
  23. KALEORID [Concomitant]
     Dosage: UNK UKN, UNK
  24. DIFFU K [Concomitant]
     Dosage: UNK UKN, UNK
  25. UVEDOSE [Concomitant]
     Dosage: 100000 IU, QOW

REACTIONS (1)
  - Cholestasis [Recovered/Resolved]
